FAERS Safety Report 17827219 (Version 1)
Quarter: 2020Q2

REPORT INFORMATION
  Report Type: Spontaneous
  Country: US (occurrence: US)
  Receive Date: 20200527
  Receipt Date: 20200527
  Transmission Date: 20200714
  Serious: Yes (Death, Other)
  Sender: FDA-Public Use
  Company Number: US-SA-2020SA134326

PATIENT
  Sex: Male

DRUGS (1)
  1. LANTUS SOLOSTAR [Suspect]
     Active Substance: INSULIN GLARGINE
     Indication: TYPE 2 DIABETES MELLITUS
     Dosage: 5 IU, QD
     Route: 065

REACTIONS (5)
  - Renal disorder [Unknown]
  - Cardiac operation [Unknown]
  - Diabetic complication [Unknown]
  - Leg amputation [Unknown]
  - Death [Fatal]

NARRATIVE: CASE EVENT DATE: 1994
